FAERS Safety Report 8438988-4 (Version None)
Quarter: 2012Q2

REPORT INFORMATION
  Report Type: 
  Country: None (occurrence: None)
  Receive Date: 20120615
  Receipt Date: 20120610
  Transmission Date: 20120825
  Serious: No
  Sender: FDA-Public Use
  Company Number: US-PFIZER INC-2012141045

PATIENT
  Sex: Female

DRUGS (1)
  1. CALAN [Suspect]
     Dosage: UNK

REACTIONS (1)
  - RASH [None]
